FAERS Safety Report 13797337 (Version 1)
Quarter: 2017Q3

REPORT INFORMATION
  Report Type: Spontaneous
  Country: US (occurrence: US)
  Receive Date: 20170727
  Receipt Date: 20170727
  Transmission Date: 20171127
  Serious: No
  Sender: FDA-Public Use
  Company Number: US-BRISTOL-MYERS SQUIBB COMPANY-BMS-2017-066321

PATIENT
  Sex: Female

DRUGS (1)
  1. ABILIFY [Suspect]
     Active Substance: ARIPIPRAZOLE
     Indication: PRODUCT USED FOR UNKNOWN INDICATION
     Route: 065

REACTIONS (7)
  - Anxiety [Unknown]
  - Wrong technique in product usage process [Unknown]
  - Paranoia [Unknown]
  - Dysphagia [Unknown]
  - Palpitations [Unknown]
  - Nausea [Unknown]
  - Decreased appetite [Unknown]
